FAERS Safety Report 23260914 (Version 1)
Quarter: 2023Q4

REPORT INFORMATION
  Report Type: Other
  Country: US (occurrence: None)
  Receive Date: 20231205
  Receipt Date: 20231205
  Transmission Date: 20240110
  Serious: Yes (Hospitalization)
  Sender: FDA-Public Use
  Company Number: US-ROCHE-3462416

PATIENT
  Age: 54 Year
  Sex: Female
  Weight: 63.56 kg

DRUGS (7)
  1. OCREVUS [Suspect]
     Active Substance: OCRELIZUMAB
     Indication: Multiple sclerosis
     Route: 042
     Dates: start: 20230130
  2. BUPROPION [Concomitant]
     Active Substance: BUPROPION
  3. ZOLOFT [Concomitant]
     Active Substance: SERTRALINE HYDROCHLORIDE
  4. GABAPENTIN [Concomitant]
     Active Substance: GABAPENTIN
  5. BACLOFEN [Concomitant]
     Active Substance: BACLOFEN
  6. FLOMAX [Concomitant]
     Active Substance: TAMSULOSIN HYDROCHLORIDE
  7. CALCIUM [Concomitant]
     Active Substance: CALCIUM

REACTIONS (8)
  - Fall [Unknown]
  - Hypoaesthesia [Recovered/Resolved]
  - Neuralgia [Recovered/Resolved]
  - Somnolence [Recovered/Resolved]
  - Incoherent [Recovered/Resolved]
  - Sepsis [Recovered/Resolved]
  - Muscle spasms [Not Recovered/Not Resolved]
  - Gait inability [Not Recovered/Not Resolved]

NARRATIVE: CASE EVENT DATE: 20230716
